FAERS Safety Report 21789530 (Version 3)
Quarter: 2023Q1

REPORT INFORMATION
  Report Type: Spontaneous
  Country: JP (occurrence: JP)
  Receive Date: 20221228
  Receipt Date: 20230213
  Transmission Date: 20230418
  Serious: No
  Sender: FDA-Public Use
  Company Number: JP-MYOVANT SCIENCES GMBH-2022MYSCI1200514

PATIENT
  Sex: Female

DRUGS (1)
  1. RELUGOLIX [Suspect]
     Active Substance: RELUGOLIX
     Indication: Endometriosis
     Dosage: 40 MILLIGRAM, QD
     Route: 048
     Dates: start: 20211227

REACTIONS (1)
  - Intermenstrual bleeding [Recovered/Resolved]
